FAERS Safety Report 6036484-5 (Version None)
Quarter: 2009Q1

REPORT INFORMATION
  Report Type: 
  Country: None (occurrence: None)
  Receive Date: 20090112
  Receipt Date: 20090102
  Transmission Date: 20090719
  Serious: Yes (Disabling, Other)
  Sender: FDA-Public Use
  Company Number: GXKR2009GB00453

PATIENT
  Age: 85 Year
  Sex: Male

DRUGS (9)
  1. SIMVASTATIN [Suspect]
     Indication: ATRIAL FIBRILLATION
     Dosage: 40 MG,
  2. VERAPAMIL [Suspect]
     Indication: ATRIAL FIBRILLATION
     Dosage: 40 MG, TID,
     Dates: start: 20080801
  3. ACETYLSALICYLIC ACID SRT [Concomitant]
  4. BECLOMETHASONE DIPROPIONATE [Concomitant]
  5. BRIMONIDINE (BRIMONIDINE) [Concomitant]
  6. FUROSEMIDE (FUROSEMIDE) [Concomitant]
  7. LISINOPRIL [Concomitant]
  8. SALBUTAMOL (SALBUTAMOL) [Concomitant]
  9. SALMETEROL (SALMETEROL) [Concomitant]

REACTIONS (3)
  - DRUG INTERACTION [None]
  - HYPOKINESIA [None]
  - MYOSITIS [None]
